FAERS Safety Report 24837586 (Version 1)
Quarter: 2025Q1

REPORT INFORMATION
  Report Type: Spontaneous
  Country: CN (occurrence: CN)
  Receive Date: 20250113
  Receipt Date: 20250113
  Transmission Date: 20250409
  Serious: Yes (Hospitalization, Disabling, Other)
  Sender: PFIZER
  Company Number: CN-PFIZER INC-PV202500002752

PATIENT
  Age: 27 Year
  Sex: Female
  Weight: 66 kg

DRUGS (2)
  1. METHOTREXATE SODIUM [Suspect]
     Active Substance: METHOTREXATE SODIUM
     Indication: Neoplasm
     Dosage: 86 MG, 1X/DAY
     Route: 030
     Dates: start: 20241211, end: 20241217
  2. METHOTREXATE SODIUM [Suspect]
     Active Substance: METHOTREXATE SODIUM
     Indication: Ectopic pregnancy
     Dates: start: 20241217, end: 20241217

REACTIONS (11)
  - Acute kidney injury [Recovering/Resolving]
  - Mouth ulceration [Recovering/Resolving]
  - Granulocyte count decreased [Recovering/Resolving]
  - Platelet count decreased [Recovering/Resolving]
  - Agranulocytosis [Recovering/Resolving]
  - Mucocutaneous disorder [Recovering/Resolving]
  - Conjunctival hyperaemia [Recovering/Resolving]
  - Myelosuppression [Recovering/Resolving]
  - Skin injury [Recovering/Resolving]
  - Drug level increased [Recovering/Resolving]
  - Off label use [Unknown]

NARRATIVE: CASE EVENT DATE: 20241201
